FAERS Safety Report 5453526-6 (Version None)
Quarter: 2007Q3

REPORT INFORMATION
  Report Type: 
  Country: None (occurrence: None)
  Receive Date: 20070913
  Receipt Date: 20070903
  Transmission Date: 20080115
  Serious: Yes (Hospitalization)
  Sender: FDA-Public Use
  Company Number: B0486130A

PATIENT
  Age: 27 Year
  Sex: Female

DRUGS (1)
  1. PAXIL [Suspect]
     Indication: DEPRESSION
     Dosage: 10 MG / ORAL
     Route: 048

REACTIONS (10)
  - ACTIVATION SYNDROME [None]
  - AGGRESSION [None]
  - AGITATION [None]
  - ASPHYXIA [None]
  - BIPOLAR DISORDER [None]
  - HYPERVENTILATION [None]
  - INTENTIONAL SELF-INJURY [None]
  - IRRITABILITY [None]
  - LACERATION [None]
  - SUICIDE ATTEMPT [None]
